FAERS Safety Report 25190196 (Version 1)
Quarter: 2025Q2

REPORT INFORMATION
  Report Type: Spontaneous
  Country: FR (occurrence: FR)
  Receive Date: 20250411
  Receipt Date: 20250411
  Transmission Date: 20250717
  Serious: Yes (Other)
  Sender: ALCON
  Company Number: FR-ALCON LABORATORIES-ALC2025FR001956

PATIENT

DRUGS (1)
  1. CYCLOPENTOLATE [Suspect]
     Active Substance: CYCLOPENTOLATE
     Indication: Specialist consultation
     Dates: start: 20250219, end: 20250219

REACTIONS (2)
  - Accidental overdose [Recovered/Resolved]
  - Vomiting [Recovered/Resolved]

NARRATIVE: CASE EVENT DATE: 20250219
